FAERS Safety Report 11029581 (Version 1)
Quarter: 2015Q2

REPORT INFORMATION
  Report Type: Spontaneous
  Country: US (occurrence: None)
  Receive Date: 20150413
  Receipt Date: 20150413
  Transmission Date: 20150821
  Serious: Yes (Hospitalization)
  Sender: FDA-Public Use
  Company Number: USW201504-000084

PATIENT
  Age: 67 Year
  Sex: Male

DRUGS (3)
  1. APOKYN [Suspect]
     Active Substance: APOMORPHINE HYDROCHLORIDE
     Indication: PARKINSON^S DISEASE
     Dosage: 2-3 TIMES A DAY, SITE ABDOMEN,
     Route: 058
     Dates: start: 20141110
  2. SINEMET [Concomitant]
     Active Substance: CARBIDOPA\LEVODOPA
  3. REQUIP (ROPINIROLE) [Concomitant]

REACTIONS (1)
  - Nephrolithiasis [None]
